FAERS Safety Report 9516081 (Version 1)
Quarter: 2013Q3

REPORT INFORMATION
  Report Type: Spontaneous
  Country: US (occurrence: US)
  Receive Date: 20130911
  Receipt Date: 20130911
  Transmission Date: 20140515
  Serious: No
  Sender: FDA-Public Use
  Company Number: US-009507513-1308USA009277

PATIENT
  Sex: Male

DRUGS (2)
  1. VICTRELIS [Suspect]
     Dosage: UNK
     Route: 048
  2. REBETOL [Suspect]
     Dosage: UNK
     Route: 048

REACTIONS (3)
  - Mental impairment [Unknown]
  - Confusional state [Unknown]
  - Off label use [Unknown]
